FAERS Safety Report 15225472 (Version 2)
Quarter: 2018Q3

REPORT INFORMATION
  Report Type: Spontaneous
  Country: ES (occurrence: ES)
  Receive Date: 20180801
  Receipt Date: 20180807
  Transmission Date: 20181010
  Serious: Yes (Other)
  Sender: FDA-Public Use
  Company Number: ES-ASTRAZENECA-2018SE94862

PATIENT
  Age: 54 Year
  Sex: Male

DRUGS (2)
  1. A.A.S. [Concomitant]
     Active Substance: ASPIRIN
     Dosage: 100.0MG UNKNOWN
  2. ROSUVASTATIN. [Suspect]
     Active Substance: ROSUVASTATIN
     Dosage: 20 MG DAILY NON AZ PRODUCT
     Route: 048

REACTIONS (1)
  - Arthritis allergic [Recovered/Resolved]

NARRATIVE: CASE EVENT DATE: 20180530
